FAERS Safety Report 5012600-9 (Version None)
Quarter: 2006Q2

REPORT INFORMATION
  Report Type: 
  Country: None (occurrence: None)
  Receive Date: 20060410
  Receipt Date: 20050909
  Transmission Date: 20061013
  Serious: Yes (Hospitalization)
  Sender: FDA-Public Use
  Company Number: 05P-163-0310651-00

PATIENT
  Age: 33 Year
  Sex: Male

DRUGS (1)
  1. DEPAKOTE [Suspect]
     Indication: MANIA
     Dosage: 750 MG, 2 IN 1 D, PER ORAL
     Route: 048
     Dates: start: 20040101, end: 20050101

REACTIONS (1)
  - PANCREATITIS ACUTE [None]
